FAERS Safety Report 7742169-7 (Version None)
Quarter: 2011Q3

REPORT INFORMATION
  Report Type: 
  Country: None (occurrence: None)
  Receive Date: 20110912
  Receipt Date: 20110831
  Transmission Date: 20111222
  Serious: Yes (Other)
  Sender: FDA-Public Use
  Company Number: US-JNJFOC-20110903416

PATIENT
  Age: 44 Year
  Sex: Female
  Weight: 46.4 kg

DRUGS (3)
  1. REMICADE [Suspect]
     Indication: CROHN'S DISEASE
     Route: 042
     Dates: start: 20050101
  2. REMICADE [Suspect]
     Route: 042
     Dates: start: 20080101, end: 20081201
  3. REMICADE [Suspect]
     Route: 042
     Dates: start: 19990101

REACTIONS (3)
  - MYOSITIS [None]
  - LUPUS-LIKE SYNDROME [None]
  - ERYTHEMA MULTIFORME [None]
